FAERS Safety Report 7334049-6 (Version None)
Quarter: 2011Q1

REPORT INFORMATION
  Report Type: 
  Country: None (occurrence: None)
  Receive Date: 20110302
  Receipt Date: 20110302
  Transmission Date: 20110831
  Serious: No
  Sender: FDA-Public Use
  Company Number: None

PATIENT
  Sex: Female
  Weight: 72.5755 kg

DRUGS (1)
  1. MAGNEVIST [Suspect]
     Indication: SURGERY
     Dosage: 15 ML SINGLE DOSE VEIN
     Route: 042
     Dates: start: 20110301

REACTIONS (1)
  - NAUSEA [None]
